FAERS Safety Report 18358182 (Version 1)
Quarter: 2020Q4

REPORT INFORMATION
  Report Type: Spontaneous
  Country: DE (occurrence: DE)
  Receive Date: 20201007
  Receipt Date: 20201007
  Transmission Date: 20210114
  Serious: Yes (Other)
  Sender: FDA-Public Use
  Company Number: DE-ROCHE-2689346

PATIENT
  Sex: Female

DRUGS (1)
  1. KADCYLA [Suspect]
     Active Substance: ADO-TRASTUZUMAB EMTANSINE
     Indication: HER2 POSITIVE BREAST CANCER
     Route: 065

REACTIONS (4)
  - Off label use [Unknown]
  - Hemiplegia [Not Recovered/Not Resolved]
  - Intentional product use issue [Unknown]
  - Metastases to central nervous system [Not Recovered/Not Resolved]
